FAERS Safety Report 9555925 (Version 1)
Quarter: 2013Q3

REPORT INFORMATION
  Report Type: Spontaneous
  Country: US (occurrence: None)
  Receive Date: 20130823
  Receipt Date: 20130823
  Transmission Date: 20140515
  Serious: Yes (Hospitalization)
  Sender: FDA-Public Use
  Company Number: SYM-2013-03151

PATIENT
  Age: 75 Year
  Sex: Male
  Weight: 90.5 kg

DRUGS (16)
  1. TAMBOCOR [Suspect]
     Indication: ATRIAL FIBRILLATION
     Route: 048
     Dates: start: 20111024, end: 20120112
  2. CLOPIDOGREL (CLOPIDOGREL) (CLOPIDOGREL) [Suspect]
     Indication: PERCUTANEOUS CORONARY INTERVENTION
     Route: 040
     Dates: start: 20120111, end: 20120111
  3. NIACIN [Concomitant]
  4. ACETYLSALICYLIC ACID [Concomitant]
  5. FUROSEMIDE [Concomitant]
  6. NITROGLYCERIN (GLYCERYL TRINITRATE) (GLYCERYL TRINITRATE) [Concomitant]
  7. SIMVASTATIN (SIMVASTATIN) (SIMVASTATIN) [Concomitant]
  8. METOPROLOL (METOPROLOL) (METOPROLOL) [Concomitant]
  9. FAMOTIDINE (FAMOTIDINE) (FAMOTIDINE) [Concomitant]
  10. MIDAZOLAM (MIDAZOLAM) (MIDAZOLAM) [Concomitant]
  11. HEPARIN (HEPARIN) (HEPARIN) [Concomitant]
  12. VALSARTRAN (VALSARTAN) (VALSARTAN) [Concomitant]
  13. MULTIVITAMINS (MULTIVITAMINS (ERGOCLCIFEROL, ASCORBIC ACID , FOLIC ACID, THIAMINE HYDROCHLORIDE, RETINOL,NICOTINAMIDE, PANTHENOL) [Concomitant]
  14. OMEGA-3 (OMEGA-3 TRIGLYCERIDES) (OMEGA-D TRIGLYCERIDES) [Concomitant]
  15. RANITIDINE (RANITIDINE) (RANITIDINE) [Concomitant]
  16. HYDROCHLOROTHIAZIDE (HYDROCHLOROTHIAZIDE) (HYDROCHLOROTHIAZIDE) [Concomitant]

REACTIONS (1)
  - Bradycardia [None]
